FAERS Safety Report 7065077-6 (Version None)
Quarter: 2010Q4

REPORT INFORMATION
  Report Type: 
  Country: None (occurrence: None)
  Receive Date: 20101022
  Receipt Date: 20101022
  Transmission Date: 20110411
  Serious: Yes (Other)
  Sender: FDA-Public Use
  Company Number: None

PATIENT
  Age: 53 Year
  Sex: Female
  Weight: 52.1637 kg

DRUGS (5)
  1. ALENDRONATE 70MG BARR, MYLAN [Suspect]
     Indication: OSTEOPOROSIS
     Dosage: 70MG 1X WEEK ORAL  (2 MONTH SUPPLY)
     Route: 048
     Dates: start: 20100201
  2. ALENDRONATE 70MG BARR, MYLAN [Suspect]
     Indication: OSTEOPOROSIS
     Dosage: 70MG 1X WEEK ORAL  (2 MONTH SUPPLY)
     Route: 048
     Dates: start: 20100301
  3. VITAMIN D 50,000 UNITS BARR [Suspect]
     Indication: OSTEOPOROSIS
     Dosage: 50,000 UNITS 1X WEEK ORAL (2 MONTH SUPPLY)
     Route: 048
     Dates: start: 20100301
  4. VITAMIN D 50,000 UNITS BARR [Suspect]
     Indication: OSTEOPOROSIS
     Dosage: 50,000 UNITS 1X WEEK ORAL (2 MONTH SUPPLY)
     Route: 048
     Dates: start: 20100401
  5. LATISSE [Concomitant]

REACTIONS (1)
  - MADAROSIS [None]
